FAERS Safety Report 25724265 (Version 1)
Quarter: 2025Q3

REPORT INFORMATION
  Report Type: Other
  Country: CA (occurrence: CA)
  Receive Date: 20250826
  Receipt Date: 20250826
  Transmission Date: 20251021
  Serious: Yes (Death)
  Sender: APOTEX
  Company Number: CA-PGRTD-E2B_07950618

PATIENT
  Age: 65 Year

DRUGS (2)
  1. RIVAROXABAN [Suspect]
     Active Substance: RIVAROXABAN
     Indication: Product used for unknown indication
     Route: 065
  2. PAXLOVID [Suspect]
     Active Substance: NIRMATRELVIR\RITONAVIR
     Indication: COVID-19 treatment
     Route: 065

REACTIONS (3)
  - Drug interaction [Fatal]
  - Contraindicated product administered [Fatal]
  - Haemorrhage [Fatal]
